FAERS Safety Report 20846091 (Version 5)
Quarter: 2024Q3

REPORT INFORMATION
  Report Type: Report from Study
  Country: MX (occurrence: MX)
  Receive Date: 20220518
  Receipt Date: 20240720
  Transmission Date: 20241016
  Serious: Yes (Hospitalization, Other)
  Sender: NOVARTIS
  Company Number: MX-NOVARTISPH-NVSC2022MX114203

PATIENT
  Sex: Female
  Weight: 47 kg

DRUGS (2)
  1. TASIGNA [Suspect]
     Active Substance: NILOTINIB
     Indication: Chronic myeloid leukaemia
     Dosage: UNK UNK, QD
     Route: 048
  2. TASIGNA [Suspect]
     Active Substance: NILOTINIB
     Dosage: 2 DOSAGE FORM, BID (IN THE MORNING AND AT NIGHT /TWICE DAILY)
     Route: 048

REACTIONS (13)
  - Gait inability [Unknown]
  - Illness [Unknown]
  - Haemoglobin decreased [Recovered/Resolved]
  - Dyspnoea [Unknown]
  - Fatigue [Unknown]
  - Diabetes mellitus [Unknown]
  - Agitation [Unknown]
  - Disturbance in attention [Unknown]
  - Pain in extremity [Unknown]
  - Haemorrhage [Unknown]
  - Polyp [Unknown]
  - Diarrhoea [Unknown]
  - Off label use [Unknown]
